FAERS Safety Report 7282291-5 (Version None)
Quarter: 2011Q1

REPORT INFORMATION
  Report Type: 
  Country: None (occurrence: None)
  Receive Date: 20110125
  Receipt Date: 20110110
  Transmission Date: 20110831
  Serious: Yes (Hospitalization)
  Sender: FDA-Public Use
  Company Number: 2011000145

PATIENT
  Age: 86 Year
  Sex: Female

DRUGS (1)
  1. TARCEVA [Suspect]
     Indication: LUNG NEOPLASM MALIGNANT
     Dosage: (150 MG,QD),ORAL ; ORAL
     Route: 048
     Dates: start: 20091202

REACTIONS (3)
  - CONJUNCTIVITIS [None]
  - INFECTION [None]
  - SINUSITIS [None]
